FAERS Safety Report 6382402-X (Version None)
Quarter: 2009Q3

REPORT INFORMATION
  Report Type: 
  Country: None (occurrence: None)
  Receive Date: 20090923
  Receipt Date: 20080826
  Transmission Date: 20100115
  Serious: Yes (Other)
  Sender: FDA-Public Use
  Company Number: 2008US004260

PATIENT
  Age: 60 Year
  Sex: Female

DRUGS (3)
  1. ALOXI     (PALONOSETRON HYDROCHLORIDE) INJECTION, [Suspect]
     Indication: PROPHYLAXIS OF NAUSEA AND VOMITING
     Dosage: 0.25 MG, SINGLE, INTRAVENOUS
     Route: 042
     Dates: start: 20071101, end: 20071101
  2. PEPCID [Concomitant]
  3. DECADRON [Concomitant]

REACTIONS (4)
  - FLUSHING [None]
  - HYPERSENSITIVITY [None]
  - PARAESTHESIA [None]
  - RASH GENERALISED [None]
